FAERS Safety Report 10258369 (Version 1)
Quarter: 2014Q2

REPORT INFORMATION
  Report Type: Spontaneous
  Country: FR (occurrence: FR)
  Receive Date: 20140625
  Receipt Date: 20140625
  Transmission Date: 20141212
  Serious: Yes (Hospitalization, Other)
  Sender: FDA-Public Use
  Company Number: FR-PFIZER INC-2014169571

PATIENT
  Age: 53 Year
  Sex: Male

DRUGS (15)
  1. DALACINE [Suspect]
     Indication: BACTERIAL INFECTION
     Dosage: 600 MG, 3X/DAY
     Route: 048
     Dates: start: 20131115, end: 20131119
  2. BACTRIM [Suspect]
     Indication: BACTERIAL INFECTION
     Dosage: 1 DF, 3X/DAY
     Route: 048
     Dates: start: 20131104, end: 20131119
  3. ORBENINE [Suspect]
     Indication: BACTERIAL INFECTION
     Dosage: UNK
     Route: 048
     Dates: start: 20131104, end: 20131115
  4. MOPRAL [Suspect]
     Dosage: 20 MG, 1X/DAY
     Route: 048
     Dates: end: 20131122
  5. KARDEGIC [Concomitant]
     Dosage: 1 DF, DAILY
     Route: 048
  6. CARDENSIEL [Concomitant]
     Dosage: 2.5 MG, 2X/DAY
     Route: 048
  7. TAHOR [Concomitant]
     Dosage: 20 MG, DAILY
     Route: 048
  8. TRIATEC [Concomitant]
     Dosage: 2.5 MG, DAILY
     Route: 048
  9. DAFALGAN [Concomitant]
     Dosage: 1 DF, 3X/DAY
     Route: 048
  10. NOVONORM [Concomitant]
     Dosage: 1 DF, 2X/DAY
     Route: 048
     Dates: end: 20131122
  11. GLUCOPHAGE [Concomitant]
     Dosage: 850 MG, 2X/DAY
     Route: 048
     Dates: end: 20131122
  12. LOVENOX [Concomitant]
     Dosage: 1 DF, DAILY
     Route: 058
     Dates: end: 20131122
  13. XANAX [Concomitant]
     Dosage: 0.50 MG, 1X/DAY
     Route: 048
  14. NICOPATCH [Concomitant]
     Dosage: 1 DF, DAILY
     Route: 062
  15. AUGMENTIN [Concomitant]
     Indication: BACTERIAL INFECTION
     Dosage: UNK
     Dates: start: 20131030, end: 20131101

REACTIONS (1)
  - Renal failure acute [Recovered/Resolved]
